FAERS Safety Report 8131171-1 (Version None)
Quarter: 2012Q1

REPORT INFORMATION
  Report Type: 
  Country: None (occurrence: None)
  Receive Date: 20120208
  Receipt Date: 20120123
  Transmission Date: 20120608
  Serious: Yes (Disabling)
  Sender: FDA-Public Use
  Company Number: COL_10789_2012

PATIENT
  Sex: Male

DRUGS (3)
  1. ANTIHYPERTENSIVES [Concomitant]
  2. DIURETICS [Concomitant]
  3. PERIOGARD [Suspect]
     Indication: GINGIVITIS
     Dosage: (1 DF BID, [FILLED CAP TO LINE INDICATED] ORAL)
     Route: 048
     Dates: start: 20110601, end: 20110801

REACTIONS (1)
  - AGEUSIA [None]
